FAERS Safety Report 13283779 (Version 1)
Quarter: 2017Q1

REPORT INFORMATION
  Report Type: Report from Study
  Country: US (occurrence: US)
  Receive Date: 20170301
  Receipt Date: 20170301
  Transmission Date: 20170428
  Serious: Yes (Death, Hospitalization)
  Sender: FDA-Public Use
  Company Number: US-AMGEN-USACT2017008324

PATIENT
  Age: 83 Year
  Sex: Female

DRUGS (2)
  1. CARFILZOMIB [Suspect]
     Active Substance: CARFILZOMIB
     Indication: DIFFUSE LARGE B-CELL LYMPHOMA
     Dosage: UNK
     Route: 065
     Dates: start: 20161122, end: 20161129
  2. ROMIDEPSIN [Suspect]
     Active Substance: ROMIDEPSIN
     Indication: DIFFUSE LARGE B-CELL LYMPHOMA
     Dosage: UNK
     Route: 065
     Dates: start: 20161122, end: 20161129

REACTIONS (4)
  - Febrile neutropenia [Unknown]
  - Cardiac failure [Unknown]
  - Death [Fatal]
  - Lung infection [Unknown]

NARRATIVE: CASE EVENT DATE: 20161207
